FAERS Safety Report 9115925 (Version 2)
Quarter: 2013Q1

REPORT INFORMATION
  Report Type: Report from Study
  Country: IE (occurrence: IE)
  Receive Date: 20130225
  Receipt Date: 20130306
  Transmission Date: 20140127
  Serious: Yes (Hospitalization, Other)
  Sender: FDA-Public Use
  Company Number: IE-GLAXOSMITHKLINE-B0869930A

PATIENT
  Age: 71 Year
  Sex: Female
  Weight: 78.2 kg

DRUGS (6)
  1. PAZOPANIB [Suspect]
     Indication: RENAL CELL CARCINOMA
     Dosage: 800MG PER DAY
     Route: 048
     Dates: start: 20120724, end: 20130212
  2. LEVOTHYROXINE [Concomitant]
     Indication: HYPOTHYROIDISM
     Dosage: 100MCG PER DAY
  3. OMEPRAZOLE [Concomitant]
     Indication: GASTROOESOPHAGEAL REFLUX DISEASE
     Dosage: 20MG PER DAY
  4. AMLODIPINE [Concomitant]
     Indication: HYPERTENSION
     Dosage: 10MG PER DAY
  5. INDAPAMIDE [Concomitant]
     Indication: HYPERTENSION
  6. LABETALOL [Concomitant]
     Indication: HYPERTENSION
     Dosage: 200MG PER DAY

REACTIONS (1)
  - Transient ischaemic attack [Recovered/Resolved]
